FAERS Safety Report 22182792 (Version 1)
Quarter: 2023Q2

REPORT INFORMATION
  Report Type: Spontaneous
  Country: US (occurrence: None)
  Receive Date: 20230406
  Receipt Date: 20230406
  Transmission Date: 20230722
  Serious: Yes (unspecified)
  Sender: FDA-Public Use
  Company Number: None

PATIENT
  Sex: 0

DRUGS (1)
  1. PEGFILGRASTIM-JMDB [Suspect]
     Active Substance: PEGFILGRASTIM-JMDB

REACTIONS (7)
  - Chest discomfort [None]
  - Muscle tightness [None]
  - Gastrointestinal disorder [None]
  - Pain [None]
  - Nausea [None]
  - Anxiety [None]
  - Injection related reaction [None]

NARRATIVE: CASE EVENT DATE: 20230303
